FAERS Safety Report 6365969-7 (Version None)
Quarter: 2009Q3

REPORT INFORMATION
  Report Type: 
  Country: None (occurrence: None)
  Receive Date: 20090919
  Receipt Date: 20090826
  Transmission Date: 20100115
  Serious: No
  Sender: FDA-Public Use
  Company Number: US-ABBOTT-09P-163-0594051-00

PATIENT
  Sex: Male
  Weight: 102.15 kg

DRUGS (7)
  1. HUMIRA [Suspect]
     Indication: PSORIATIC ARTHROPATHY
     Route: 058
     Dates: start: 20060101
  2. HUMIRA [Suspect]
     Indication: PSORIASIS
     Route: 058
     Dates: end: 20081201
  3. METHOTREXATE [Suspect]
     Indication: PSORIASIS
     Route: 048
  4. METHOTREXATE [Suspect]
     Indication: PSORIATIC ARTHROPATHY
  5. CRESTOR [Concomitant]
     Indication: BLOOD CHOLESTEROL INCREASED
     Dosage: UNSURE OF STRENGTH
     Route: 048
  6. ZETIA [Concomitant]
     Indication: BLOOD CHOLESTEROL INCREASED
     Route: 048
  7. UNKNOWN BLOOD PRESSURE MEDICATION [Concomitant]
     Indication: HYPERTENSION
     Dosage: UNSURE OF NAME AND STRENGTH
     Route: 048

REACTIONS (1)
  - HEPATIC ENZYME INCREASED [None]
